FAERS Safety Report 16824094 (Version 3)
Quarter: 2023Q4

REPORT INFORMATION
  Report Type: Spontaneous
  Country: PL (occurrence: PL)
  Receive Date: 20190918
  Receipt Date: 20231018
  Transmission Date: 20240110
  Serious: Yes (Other)
  Sender: FDA-Public Use
  Company Number: PL-BLUEFISH PHARMACEUTICALS AB-2019BF001050

PATIENT
  Age: 42 Year
  Sex: Female

DRUGS (10)
  1. ALENDRONATE [Suspect]
     Active Substance: ALENDRONATE SODIUM
     Indication: Bone density decreased
     Dosage: UNK
     Route: 065
  2. ATORVASTATIN [Suspect]
     Active Substance: ATORVASTATIN
     Indication: Turner^s syndrome
     Dosage: UNK
     Route: 065
  3. CALCIUM LACTATE [Suspect]
     Active Substance: CALCIUM LACTATE
     Indication: Bone density decreased
     Dosage: UNK
     Route: 065
  4. VITAMIN D3 [Suspect]
     Active Substance: CHOLECALCIFEROL
     Indication: Bone density decreased
     Dosage: UNK
     Route: 065
  5. CALCIUM [Suspect]
     Active Substance: CALCIUM
     Indication: Bone density decreased
     Dosage: UNK
     Route: 065
  6. CALCIUM [Suspect]
     Active Substance: CALCIUM
     Indication: Turner^s syndrome
  7. CHOLECALCIFEROL [Suspect]
     Active Substance: CHOLECALCIFEROL
     Indication: Turner^s syndrome
     Dosage: UNK
     Route: 065
  8. TRISEQUENS [Concomitant]
     Active Substance: ESTRADIOL\NORETHINDRONE ACETATE
     Indication: Primary hypogonadism
     Dosage: UNK
     Route: 048
  9. ESTRADIOL [Concomitant]
     Active Substance: ESTRADIOL
     Indication: Primary hypogonadism
     Dosage: UNK (TRANSDERMAL PATCH SYSTEM)
     Route: 062
  10. LEVOTHYROXINE [Concomitant]
     Active Substance: LEVOTHYROXINE
     Indication: Product used for unknown indication
     Dosage: UNK
     Route: 065

REACTIONS (3)
  - Deafness bilateral [Unknown]
  - Hypothyroidism [Recovered/Resolved]
  - Drug ineffective [Unknown]

NARRATIVE: CASE EVENT DATE: 20110101
